FAERS Safety Report 14178386 (Version 1)
Quarter: 2017Q4

REPORT INFORMATION
  Report Type: Spontaneous
  Country: US (occurrence: US)
  Receive Date: 20171110
  Receipt Date: 20171110
  Transmission Date: 20180321
  Serious: Yes (Hospitalization, Other)
  Sender: FDA-Public Use
  Company Number: US-AMGEN-USASP2017167922

PATIENT
  Age: 66 Year
  Sex: Female

DRUGS (1)
  1. EPOGEN [Suspect]
     Active Substance: ERYTHROPOIETIN
     Indication: ANAEMIA
     Dosage: 20000 UNIT, UNK (DAILY TWO DAYS BEFORE SURGERY, ON THE DAY OF SURGERY, AND TWO DAYS AFTER SURGERY)
     Route: 058

REACTIONS (6)
  - Pleural effusion [Unknown]
  - Lethargy [Unknown]
  - Hypotension [Unknown]
  - Periprocedural myocardial infarction [Unknown]
  - Coronary artery thrombosis [Unknown]
  - Coronary vascular graft occlusion [Unknown]
